FAERS Safety Report 7972953-6 (Version None)
Quarter: 2011Q4

REPORT INFORMATION
  Report Type: 
  Country: None (occurrence: None)
  Receive Date: 20111213
  Receipt Date: 20111209
  Transmission Date: 20120403
  Serious: Yes (Disabling, Other)
  Sender: FDA-Public Use
  Company Number: AU-PFIZER INC-2011290130

PATIENT
  Age: 54 Year
  Sex: Female

DRUGS (10)
  1. ACETAMINOPHEN W/ CODEINE [Concomitant]
     Indication: PAIN
     Dosage: 1-2 TABLETS EVERY FOUR HOURS AS NEEDED
  2. MOBIC [Concomitant]
     Dosage: 15 MG, 0.5-1 TABLET DAILY WITH FOOD AS NEEDED
  3. PANAMAX [Concomitant]
     Dosage: 1000 MG, EVERY FOUR HOURS
  4. BACTROBAN [Concomitant]
     Dosage: 1 APPLICATION THREE TIMES DAILY
  5. MOVIPREP [Concomitant]
     Dosage: 1-2 SACHETS IN THE MORNING AS NEEDED
  6. OXYCONTIN [Concomitant]
     Dosage: 20 MG, 2X/DAY
  7. PANTOPRAZOLE [Concomitant]
     Dosage: 40 MG, 1X/DAY IN THE MORNING, 30 MINUTES BEFORE FOOD
  8. LYRICA [Suspect]
     Indication: NEURALGIA
     Dosage: 75 MG, 2X/DAY
     Route: 048
     Dates: start: 20111122, end: 20111124
  9. VENTOLIN [Concomitant]
     Indication: DYSPNOEA
     Dosage: 100MCG/DOSE, 2 PUFFS EVERY FOUR HOURS AS NEEDED
  10. EFFEXOR XR [Concomitant]
     Dosage: 75 MG, 1X/DAY IN THE MORNING

REACTIONS (8)
  - VISUAL IMPAIRMENT [None]
  - URTICARIA [None]
  - TONGUE OEDEMA [None]
  - BURNING SENSATION [None]
  - FACE OEDEMA [None]
  - GLOSSODYNIA [None]
  - LIP OEDEMA [None]
  - DIZZINESS [None]
